FAERS Safety Report 19865283 (Version 1)
Quarter: 2021Q3

REPORT INFORMATION
  Report Type: Spontaneous
  Country: US (occurrence: US)
  Receive Date: 20210921
  Receipt Date: 20210921
  Transmission Date: 20211014
  Serious: No
  Sender: FDA-Public Use
  Company Number: None

PATIENT
  Age: 18 Year
  Sex: Female
  Weight: 56.25 kg

DRUGS (1)
  1. OMEPRAZOLE. [Suspect]
     Active Substance: OMEPRAZOLE
     Indication: GASTROOESOPHAGEAL REFLUX DISEASE
     Dates: start: 20210917, end: 20210919

REACTIONS (12)
  - Somnambulism [None]
  - Palpitations [None]
  - Depressed mood [None]
  - Dyspepsia [None]
  - Feeling abnormal [None]
  - Reading disorder [None]
  - Gait disturbance [None]
  - Middle insomnia [None]
  - Condition aggravated [None]
  - Personality disorder [None]
  - Dizziness [None]
  - Poor quality sleep [None]

NARRATIVE: CASE EVENT DATE: 20210917
